FAERS Safety Report 7152634-1 (Version None)
Quarter: 2010Q4

REPORT INFORMATION
  Report Type: 
  Country: None (occurrence: None)
  Receive Date: 20101208
  Receipt Date: 20101208
  Transmission Date: 20110411
  Serious: No
  Sender: FDA-Public Use
  Company Number: None

PATIENT
  Sex: Male
  Weight: 41.95 kg

DRUGS (1)
  1. SULFAMETHOXAZOLE AND TRIMETHOPRIM [Suspect]
     Indication: IMPETIGO
     Dosage: 1 TABLET TWICE A DAY PO
     Route: 048
     Dates: start: 20100614, end: 20100615

REACTIONS (2)
  - RASH [None]
  - URTICARIA [None]
